FAERS Safety Report 10466805 (Version 1)
Quarter: 2014Q3

REPORT INFORMATION
  Report Type: Spontaneous
  Country: NL (occurrence: NL)
  Receive Date: 20140922
  Receipt Date: 20140922
  Transmission Date: 20150326
  Serious: Yes (Hospitalization, Other)
  Sender: FDA-Public Use
  Company Number: NL-AMGEN-NLDSP2014071348

PATIENT
  Age: 90 Year
  Sex: Female

DRUGS (1)
  1. XGEVA [Suspect]
     Active Substance: DENOSUMAB
     Indication: PROPHYLAXIS
     Dosage: 1.7ML (70 MG/ML), Q4WK
     Route: 058
     Dates: start: 20140220

REACTIONS (2)
  - Upper limb fracture [Unknown]
  - Investigation [Unknown]

NARRATIVE: CASE EVENT DATE: 20140913
